FAERS Safety Report 4998334-5 (Version None)
Quarter: 2006Q2

REPORT INFORMATION
  Report Type: 
  Country: None (occurrence: None)
  Receive Date: 20060510
  Receipt Date: 20060503
  Transmission Date: 20061013
  Serious: Yes (Other)
  Sender: FDA-Public Use
  Company Number: PHNU2006DE01833

PATIENT
  Sex: Female

DRUGS (5)
  1. BACLOFEN [Concomitant]
  2. MAPROTILINE [Concomitant]
  3. RAMIPRIL [Concomitant]
  4. ATENOLOL [Concomitant]
  5. LOCOL [Suspect]
     Indication: HYPERCHOLESTEROLAEMIA
     Dosage: 1 DF, QD
     Route: 048

REACTIONS (3)
  - DIAPHRAGMATIC PARALYSIS [None]
  - DYSPNOEA [None]
  - HYPOAESTHESIA [None]
